FAERS Safety Report 5587129-X (Version None)
Quarter: 2008Q1

REPORT INFORMATION
  Report Type: 
  Country: None (occurrence: None)
  Receive Date: 20080107
  Receipt Date: 20071221
  Transmission Date: 20080703
  Serious: Yes (Disabling)
  Sender: FDA-Public Use
  Company Number: 2007JP005701

PATIENT
  Age: 74 Year
  Sex: Female
  Weight: 62 kg

DRUGS (9)
  1. VESICARE [Suspect]
     Indication: HYPERTONIC BLADDER
     Dosage: 5 MG, UID/QD, ORAL
     Route: 048
     Dates: start: 20070625, end: 20070802
  2. ACECOL (TEMOCAPRIL HYDROCHLORIDE) PER ORAL NOS [Concomitant]
  3. GLIMICRON (GLICLAZIDE) PER ORAL NOS [Concomitant]
  4. MEVALOTIN (PRAVASTATIN SODIUM) PER ORAL NOS [Concomitant]
  5. GASTER D ORODISPERSABLE CR TABLET [Concomitant]
  6. ITOROL (ISOSORBIDE MONONITRATE) PER ORAL NOS [Concomitant]
  7. PANALDINE (TICLOPIDINE HYDROCHLORIDE) PER ORAL NOS [Concomitant]
  8. CONIEL (BENIDIPINE HYDROCHLORIDE) PER ORAL NOS [Concomitant]
  9. SIGMART (NICORANDIL) PER ORAL NOS [Concomitant]

REACTIONS (1)
  - CEREBRAL INFARCTION [None]
